FAERS Safety Report 4399761-X (Version None)
Quarter: 2004Q2

REPORT INFORMATION
  Report Type: 
  Country: None (occurrence: None)
  Receive Date: 20040608
  Receipt Date: 20040406
  Transmission Date: 20050107
  Serious: No
  Sender: FDA-Public Use
  Company Number: FROV000185

PATIENT
  Age: 18 Year
  Sex: Female

DRUGS (4)
  1. FROVA [Suspect]
     Indication: MIGRAINE
     Dosage: 2.5 MG ORAL
     Route: 048
     Dates: start: 20040406
  2. ZANAFLEX [Suspect]
     Indication: NECK PAIN
     Dosage: 16 MG ORAL
     Route: 048
  3. WELLBUTRIN XL (WELLBUTRIN XL) [Concomitant]
  4. COREG [Concomitant]

REACTIONS (3)
  - DYSARTHRIA [None]
  - MENTAL IMPAIRMENT [None]
  - SOMNOLENCE [None]
